FAERS Safety Report 4523534-8 (Version None)
Quarter: 2004Q4

REPORT INFORMATION
  Report Type: 
  Country: None (occurrence: None)
  Receive Date: 20041122
  Receipt Date: 20041122
  Transmission Date: 20050328
  Serious: No
  Sender: FDA-Public Use
  Company Number: None

PATIENT
  Age: 47 Year
  Sex: Male
  Weight: 96.1626 kg

DRUGS (3)
  1. AVASTIN [Suspect]
     Indication: COLON CANCER METASTATIC
     Dosage: IV 300 MG; IV 500 MG
     Route: 042
     Dates: start: 20040730
  2. AVASTIN [Suspect]
     Indication: COLON CANCER METASTATIC
     Dosage: IV 300 MG; IV 500 MG
     Route: 042
     Dates: start: 20041001
  3. .. [Concomitant]

REACTIONS (8)
  - ABDOMINAL ABSCESS [None]
  - ABDOMINAL PAIN UPPER [None]
  - FISTULA [None]
  - IMPAIRED HEALING [None]
  - LARGE INTESTINE PERFORATION [None]
  - POSTOPERATIVE WOUND COMPLICATION [None]
  - PYREXIA [None]
  - TENDERNESS [None]
